FAERS Safety Report 9997623 (Version 1)
Quarter: 2014Q1

REPORT INFORMATION
  Report Type: Spontaneous
  Country: US (occurrence: None)
  Receive Date: 20140304
  Receipt Date: 20140304
  Transmission Date: 20141002
  Serious: Yes (Hospitalization, Other)
  Sender: FDA-Public Use
  Company Number: RB-2937-2006

PATIENT
  Sex: Male

DRUGS (2)
  1. SUBUTEX 8 MG [Suspect]
     Indication: DRUG DEPENDENCE
     Dosage: (8 MG QD, MOTHER OF INFANT ON 8 MG SUBUTEX QD THROUGH DELIVERY TRANSPLACENTAL)
     Route: 064
     Dates: start: 20060106, end: 20060126
  2. SUBOXONE 8 MG [Suspect]
     Indication: DRUG DEPENDENCE
     Dosage: (8 MG QD TRANSPLACENTAL)
     Route: 064
     Dates: start: 20050901, end: 20060105

REACTIONS (2)
  - Foetal exposure during pregnancy [None]
  - Drug withdrawal syndrome neonatal [None]
